FAERS Safety Report 9404892 (Version 1)
Quarter: 2013Q3

REPORT INFORMATION
  Report Type: Spontaneous
  Country: FR (occurrence: FR)
  Receive Date: 20130717
  Receipt Date: 20130717
  Transmission Date: 20140515
  Serious: Yes (Hospitalization)
  Sender: FDA-Public Use
  Company Number: FR-SANOFI-AVENTIS-2013SA069734

PATIENT
  Age: 84 Year
  Sex: Male

DRUGS (6)
  1. STILNOX [Suspect]
     Indication: PRODUCT USED FOR UNKNOWN INDICATION
     Route: 048
     Dates: start: 20130514
  2. LASILIX [Suspect]
     Indication: CARDIAC FAILURE
     Route: 048
     Dates: start: 20130513
  3. AUGMENTIN [Suspect]
     Indication: LUNG DISORDER
     Route: 042
     Dates: start: 20130513, end: 20130516
  4. ROCEPHINE [Suspect]
     Indication: LUNG DISORDER
     Route: 058
     Dates: start: 20130507, end: 20130513
  5. GUTRON [Concomitant]
     Indication: ORTHOSTATIC HYPOTENSION
     Route: 048
  6. SINEMET [Concomitant]
     Indication: PARKINSON^S DISEASE
     Route: 048

REACTIONS (1)
  - Neutropenia [Unknown]
